FAERS Safety Report 4364891-5 (Version None)
Quarter: 2004Q2

REPORT INFORMATION
  Report Type: 
  Country: None (occurrence: None)
  Receive Date: 20040526
  Receipt Date: 20040330
  Transmission Date: 20050107
  Serious: Yes (Hospitalization)
  Sender: FDA-Public Use
  Company Number: JP-BRISTOL-MYERS SQUIBB COMPANY-12547915

PATIENT
  Age: 75 Year
  Sex: Female

DRUGS (5)
  1. TAXOL [Suspect]
     Indication: OVARIAN CANCER
     Dosage: THERAPY DATES: 22-DEC-2003 TO 08-MAR-2004
     Route: 042
     Dates: start: 20040308, end: 20040308
  2. PARAPLATIN [Suspect]
     Indication: OVARIAN CANCER
     Dosage: THERAPY DATES: 22-DEC-2003 TO 08-MAR-2004
     Route: 042
     Dates: start: 20040308, end: 20040308
  3. DECADRON [Concomitant]
     Route: 042
     Dates: start: 20040308, end: 20040308
  4. ZANTAC [Concomitant]
     Route: 042
     Dates: start: 20040308, end: 20040308
  5. RESTAMIN [Concomitant]
     Route: 048
     Dates: start: 20040308, end: 20040308

REACTIONS (8)
  - DIABETIC HYPEROSMOLAR COMA [None]
  - DISSEMINATED INTRAVASCULAR COAGULATION [None]
  - FEBRILE NEUTROPENIA [None]
  - HEPATIC FUNCTION ABNORMAL [None]
  - PULMONARY OEDEMA [None]
  - RENAL FAILURE ACUTE [None]
  - SEPSIS [None]
  - SYSTEMIC CANDIDA [None]
